FAERS Safety Report 4649252-3 (Version None)
Quarter: 2005Q2

REPORT INFORMATION
  Report Type: 
  Country: None (occurrence: None)
  Receive Date: 20050429
  Receipt Date: 20050420
  Transmission Date: 20051028
  Serious: Yes (Hospitalization)
  Sender: FDA-Public Use
  Company Number: US-BRISTOL-MYERS SQUIBB COMPANY-12940045

PATIENT
  Age: 57 Year
  Sex: Male

DRUGS (6)
  1. CISPLATIN [Suspect]
     Indication: SQUAMOUS CELL CARCINOMA
     Route: 042
     Dates: start: 20010518, end: 20010518
  2. BLINDED: CETUXIMAB [Suspect]
     Indication: SQUAMOUS CELL CARCINOMA
     Route: 042
     Dates: start: 20010518, end: 20010518
  3. BLINDED: PLACEBO [Suspect]
     Indication: SQUAMOUS CELL CARCINOMA
     Route: 042
     Dates: start: 20010518, end: 20010518
  4. OXYCONTIN [Concomitant]
  5. ATIVAN [Concomitant]
  6. ZOFRAN [Concomitant]

REACTIONS (6)
  - FATIGUE [None]
  - FISTULA [None]
  - HAEMORRHAGE [None]
  - NAUSEA [None]
  - VOMITING [None]
  - WOUND DEHISCENCE [None]
